FAERS Safety Report 16140576 (Version 4)
Quarter: 2024Q1

REPORT INFORMATION
  Report Type: Spontaneous
  Country: FR (occurrence: FR)
  Receive Date: 20190401
  Receipt Date: 20240312
  Transmission Date: 20240410
  Serious: Yes (Life-Threatening, Other)
  Sender: FDA-Public Use
  Company Number: FR-ROCHE-2180778

PATIENT
  Age: 38 Year
  Sex: Male

DRUGS (35)
  1. METHOTREXATE [Suspect]
     Active Substance: METHOTREXATE
     Indication: Central nervous system lymphoma
     Dosage: 2 CYCLES OF CYM CONSOLIDATION ANDCOPADEM INDUCTION
     Route: 065
  2. METHOTREXATE [Suspect]
     Active Substance: METHOTREXATE
     Dosage: 2CYCLEOFCYMCONSOLIDATION,3CYCLESOFDIAMAT1STRELAPSE
     Route: 065
  3. METHOTREXATE [Suspect]
     Active Substance: METHOTREXATE
     Dosage: 2 CYCLES OF COPADEM INDUCTION
     Route: 065
  4. METHOTREXATE [Suspect]
     Active Substance: METHOTREXATE
     Dosage: 3 CYCLES OF DIAM AT 1ST RELAPSE
     Route: 037
  5. METHOTREXATE [Suspect]
     Active Substance: METHOTREXATE
     Dosage: FROM 4 COURSES OF R-DIAM AT 2ND RELAPSE (15 MG)
     Route: 037
  6. METHOTREXATE [Suspect]
     Active Substance: METHOTREXATE
     Dosage: FROM 4 COURSES OF R-DIAM AT 2ND RELAPSE (ON D3)
     Route: 065
  7. DEXAMETHASONE [Suspect]
     Active Substance: DEXAMETHASONE
     Indication: Central nervous system lymphoma
     Dosage: FROM 4 COURSE OF R-DIAM AT 2ND RELAPSE
     Route: 065
  8. DEXAMETHASONE [Suspect]
     Active Substance: DEXAMETHASONE
     Dosage: 4 COURSES OF R-DIAM AT2ND RELAPSE (40MG D1 TO D4)
     Route: 065
  9. THIOTEPA [Suspect]
     Active Substance: THIOTEPA
     Indication: Prophylaxis against transplant rejection
     Dosage: CONDITIONING THERAPY FOR SECOND ASCT
     Route: 065
  10. THIOTEPA [Suspect]
     Active Substance: THIOTEPA
     Indication: Autologous haematopoietic stem cell transplant
     Dosage: 250 MG/M2 FROM DAY 9TO7:487.50 MGX3 DOSESIN TOTAL
     Route: 065
  11. RITUXIMAB [Suspect]
     Active Substance: RITUXIMAB
     Indication: Central nervous system lymphoma
     Dosage: 4 COURSES OF R-DIAM (RITUXIMAB 375 MG/M2 IV AT D1)
     Route: 042
  12. RITUXIMAB [Suspect]
     Active Substance: RITUXIMAB
     Dosage: 4 COURSES OF R-DIAM (RITUXIMAB 375 MG/M2 IV AT D1)
     Route: 042
  13. CYTARABINE [Suspect]
     Active Substance: CYTARABINE
     Indication: Central nervous system lymphoma
     Dosage: 2 CYCLES OF COPADEM INDUCTION
     Route: 037
  14. CYTARABINE [Suspect]
     Active Substance: CYTARABINE
     Dosage: 100 MILLIGRAM/SQ. METER
     Route: 065
  15. CYTARABINE [Suspect]
     Active Substance: CYTARABINE
     Dosage: 2 CYCLES OF CYM CONSOLIDATION, UNK
     Route: 037
  16. CYTARABINE [Suspect]
     Active Substance: CYTARABINE
     Dosage: FROM 4 COURSES OF R-DIAM AT 2ND RELAPSE
     Route: 065
  17. CYTARABINE [Suspect]
     Active Substance: CYTARABINE
     Dosage: CONDITIONEDBYBEAM-ARAC HIGHDOSE BEFOREASCT,INFUSED
     Route: 042
  18. CYTARABINE [Suspect]
     Active Substance: CYTARABINE
     Dosage: 4 COURSES OF R-DIAM (1500 MG/M2X2 /DAY ON D1-D2)
     Route: 065
  19. IFOSFAMIDE [Suspect]
     Active Substance: IFOSFAMIDE
     Indication: Central nervous system lymphoma
     Dosage: 3 CYCLES OF DIAM AT 1ST RELAPSE
     Route: 065
  20. IFOSFAMIDE [Suspect]
     Active Substance: IFOSFAMIDE
     Dosage: 4 COURSES OF R-DIAM (FROM D1-D5)
     Route: 065
  21. CYCLOPHOSPHAMIDE [Suspect]
     Active Substance: CYCLOPHOSPHAMIDE
     Indication: Central nervous system lymphoma
     Dosage: DEBULKING CHEMOTHERAPY
     Route: 065
  22. CYCLOPHOSPHAMIDE [Suspect]
     Active Substance: CYCLOPHOSPHAMIDE
     Indication: Autologous haematopoietic stem cell transplant
     Dosage: 250 MILLIGRAM/SQ. METER, BID
     Route: 065
  23. CYCLOPHOSPHAMIDE [Suspect]
     Active Substance: CYCLOPHOSPHAMIDE
     Dosage: CONNDITIONING THERAPY FOR SECOND ASCT
     Route: 065
  24. CYCLOPHOSPHAMIDE [Suspect]
     Active Substance: CYCLOPHOSPHAMIDE
     Dosage: 60 MG/KG, ON DAY -3 AND -2
     Route: 065
  25. BUSULFAN [Suspect]
     Active Substance: BUSULFAN
     Indication: Prophylaxis against transplant rejection
     Dosage: 0.8 MG/KGX 4, CONDITIONING THERAPY FOR SECOND ASCT
     Route: 042
  26. BUSULFAN [Suspect]
     Active Substance: BUSULFAN
     Indication: Autologous haematopoietic stem cell transplant
     Dosage: 0.8 MG/KG, QID (4/DAY) FROM DAY -6 TO -4
     Route: 042
  27. BUSULFAN [Suspect]
     Active Substance: BUSULFAN
     Dosage: 0.8 MG/KG,QID,FROM DAY6TO4:63 UGX10 DOSES IN TOTAL
     Route: 065
  28. RACECADOTRIL [Suspect]
     Active Substance: RACECADOTRIL
     Indication: Product used for unknown indication
     Dosage: UNK
     Route: 065
  29. CYCLOPHOSPHAMIDE [Suspect]
     Active Substance: CYCLOPHOSPHAMIDE
     Indication: Product used for unknown indication
     Dosage: UNK
     Route: 065
  30. CYCLOPHOSPHAMIDE [Suspect]
     Active Substance: CYCLOPHOSPHAMIDE
     Indication: Autologous haematopoietic stem cell transplant
     Dosage: 2 CYCLES OF COPADEM INDUCTION
     Route: 065
  31. CYCLOPHOSPHAMIDE [Suspect]
     Active Substance: CYCLOPHOSPHAMIDE
     Dosage: CONDITIONING THERAPY FOR SECOND ASCT (60 MG/KG)
     Route: 065
  32. CYCLOPHOSPHAMIDE [Suspect]
     Active Substance: CYCLOPHOSPHAMIDE
     Dosage: 60 MG/KG, ON DAY 3 AND 2: 4737.50 UGX 2 TOTAL
     Route: 065
  33. CEFTAZIDIME [Suspect]
     Active Substance: CEFTAZIDIME
     Indication: Product used for unknown indication
     Dosage: UNK
     Route: 065
  34. LENOGRASTIM [Suspect]
     Active Substance: LENOGRASTIM
     Indication: Product used for unknown indication
     Dosage: 34 MUI/D, STARTING AT D12 AFTER 2ND CYCLEOF R-DIAM
     Route: 065
  35. FILGRASTIM [Concomitant]
     Active Substance: FILGRASTIM
     Dosage: UNK
     Route: 065

REACTIONS (3)
  - Mucosal inflammation [Recovering/Resolving]
  - Pseudomonal sepsis [Recovering/Resolving]
  - Enterobacter sepsis [Recovering/Resolving]
